FAERS Safety Report 8344506-1 (Version None)
Quarter: 2012Q2

REPORT INFORMATION
  Report Type: 
  Country: None (occurrence: None)
  Receive Date: 20120508
  Receipt Date: 20120507
  Transmission Date: 20120825
  Serious: No
  Sender: FDA-Public Use
  Company Number: US-PFIZER INC-2012111576

PATIENT
  Sex: Female
  Weight: 82 kg

DRUGS (3)
  1. LORTAB [Concomitant]
     Indication: BACK DISORDER
  2. LYRICA [Suspect]
     Indication: NEURODERMATITIS
     Dosage: 75 MG, 3X/DAY
     Route: 048
  3. LORTAB [Concomitant]
     Indication: NEURODERMATITIS
     Dosage: UNK, AS NEEDED

REACTIONS (1)
  - AGITATION [None]
